FAERS Safety Report 6114499-6 (Version None)
Quarter: 2009Q1

REPORT INFORMATION
  Report Type: 
  Country: None (occurrence: None)
  Receive Date: 20090313
  Receipt Date: 20090310
  Transmission Date: 20090719
  Serious: Yes (Congenital Anomaly)
  Sender: FDA-Public Use
  Company Number: FR-BRISTOL-MYERS SQUIBB COMPANY-14538771

PATIENT

DRUGS (1)
  1. COUMADIN [Suspect]
     Indication: CARDIAC VALVE PROSTHESIS USER
     Route: 064

REACTIONS (4)
  - CONGENITAL CARDIOVASCULAR ANOMALY [None]
  - INTRA-UTERINE DEATH [None]
  - MICROGNATHIA [None]
  - MUSCLE ATROPHY [None]
